FAERS Safety Report 10885039 (Version 1)
Quarter: 2015Q1

REPORT INFORMATION
  Report Type: Spontaneous
  Country: US (occurrence: US)
  Receive Date: 20150304
  Receipt Date: 20150304
  Transmission Date: 20150721
  Serious: No
  Sender: FDA-Public Use
  Company Number: US-TEVA-470272USA

PATIENT
  Age: 74 Year
  Sex: Female
  Weight: 74.83 kg

DRUGS (6)
  1. CETIRIZINE W/PSEUDOEPHEDRINE [Suspect]
     Active Substance: CETIRIZINE HYDROCHLORIDE\PSEUDOEPHEDRINE HYDROCHLORIDE
     Indication: SINUS CONGESTION
  2. ZOCOR [Concomitant]
     Active Substance: SIMVASTATIN
  3. CETIRIZINE W/PSEUDOEPHEDRINE [Suspect]
     Active Substance: CETIRIZINE HYDROCHLORIDE\PSEUDOEPHEDRINE HYDROCHLORIDE
     Indication: PARANASAL SINUS DISCOMFORT
     Dosage: PSEUDOEPHEDRINE HYDROCHLORIDE 120 MG, CETIRIZINE HYDROCHOLRIDE 5 MG; ONE TABLET, SINGLE
     Route: 048
     Dates: start: 20140316, end: 20140316
  4. TOPROL XL [Concomitant]
     Active Substance: METOPROLOL SUCCINATE
  5. CETIRIZINE W/PSEUDOEPHEDRINE [Suspect]
     Active Substance: CETIRIZINE HYDROCHLORIDE\PSEUDOEPHEDRINE HYDROCHLORIDE
     Indication: RHINORRHOEA
  6. SYNTHROID [Concomitant]
     Active Substance: LEVOTHYROXINE SODIUM

REACTIONS (5)
  - Nausea [Recovered/Resolved]
  - Drug ineffective [Unknown]
  - Palpitations [Recovered/Resolved]
  - Insomnia [Recovered/Resolved]
  - Dizziness [Recovered/Resolved]

NARRATIVE: CASE EVENT DATE: 20140316
